FAERS Safety Report 14711113 (Version 2)
Quarter: 2018Q2

REPORT INFORMATION
  Report Type: Spontaneous
  Country: US (occurrence: US)
  Receive Date: 20180403
  Receipt Date: 20180509
  Transmission Date: 20180711
  Serious: No
  Sender: FDA-Public Use
  Company Number: PHEH2018US012688

PATIENT
  Age: 50 Year
  Sex: Female

DRUGS (2)
  1. MEKINIST [Suspect]
     Active Substance: TRAMETINIB DIMETHYL SULFOXIDE
     Dosage: 1.5 MG, QD
     Route: 048
  2. MEKINIST [Suspect]
     Active Substance: TRAMETINIB DIMETHYL SULFOXIDE
     Indication: CERVIX CARCINOMA
     Dosage: 2 MG, QD
     Route: 048
     Dates: start: 20180220, end: 20180312

REACTIONS (2)
  - Rash [Unknown]
  - Visual impairment [Unknown]

NARRATIVE: CASE EVENT DATE: 20180312
